FAERS Safety Report 16396670 (Version 1)
Quarter: 2019Q2

REPORT INFORMATION
  Report Type: Spontaneous
  Country: AU (occurrence: AU)
  Receive Date: 20190606
  Receipt Date: 20190606
  Transmission Date: 20190711
  Serious: Yes (Other)
  Sender: FDA-Public Use
  Company Number: AU-SUN PHARMACEUTICAL INDUSTRIES LTD-2018R1-192656

PATIENT
  Age: 58 Year
  Sex: Female

DRUGS (2)
  1. HYDROXYCHLOROQUINE [Suspect]
     Active Substance: HYDROXYCHLOROQUINE
     Indication: LICHEN SCLEROSUS
     Dosage: 200 MILLIGRAM, DAILY (3.7 MG/KG ACTUAL BODYWEIGHT, CUMULATIVE DOSE GREATER THAN 1160 G)
     Route: 065
     Dates: start: 2004
  2. HYDROXYCHLOROQUINE [Suspect]
     Active Substance: HYDROXYCHLOROQUINE
     Indication: SKIN DISORDER
     Dosage: 400 MILLIGRAM, DAILY (7.3 MG/KG ACTUAL BODYWEIGHT)
     Route: 065
     Dates: start: 1996, end: 2002

REACTIONS (4)
  - Retinal toxicity [Unknown]
  - Overdose [Unknown]
  - Optic atrophy [Unknown]
  - Maculopathy [Unknown]
